FAERS Safety Report 24705256 (Version 1)
Quarter: 2024Q4

REPORT INFORMATION
  Report Type: Spontaneous
  Country: CA (occurrence: None)
  Receive Date: 20241206
  Receipt Date: 20241206
  Transmission Date: 20250115
  Serious: Yes (Other)
  Sender: ORION
  Company Number: CA-PFIZER INC-202400315620

PATIENT
  Age: 51 Year
  Sex: Female

DRUGS (2)
  1. METHOTREXATE [Suspect]
     Active Substance: METHOTREXATE
     Indication: Crohn^s disease
  2. HUMIRA [Suspect]
     Active Substance: ADALIMUMAB
     Indication: Crohn^s disease

REACTIONS (8)
  - Anal abscess [Unknown]
  - Fistula [Unknown]
  - Arthralgia [Unknown]
  - Bartholin^s cyst [Unknown]
  - Cervical cyst [Unknown]
  - Intervertebral disc protrusion [Unknown]
  - Back pain [Unknown]
  - Product use in unapproved indication [Unknown]
